FAERS Safety Report 8565306-3 (Version None)
Quarter: 2012Q3

REPORT INFORMATION
  Report Type: 
  Country: None (occurrence: None)
  Receive Date: 20120723
  Receipt Date: 20120711
  Transmission Date: 20120928
  Serious: Yes (Other)
  Sender: FDA-Public Use
  Company Number: 7143570

PATIENT
  Age: 87 Year
  Sex: Male

DRUGS (4)
  1. VERTIZINE (CINNARIZINE) (CINNARIZINE) [Concomitant]
  2. LEVOTHYROXINE SODIUM [Suspect]
     Indication: HYPOTHYROIDISM
     Dosage: 25 MCG (25 MCG, 1 IN 1 D) ORAL, 50 MCG (50 MCG, 1 IN 1 D)
     Route: 048
     Dates: start: 20120401, end: 20120515
  3. RENITEC (RENTIEC) (ENALAPRIL MALEATE) (ENALAPRIL MALEATE) [Concomitant]
  4. ACETYLCYSTEINE [Concomitant]

REACTIONS (8)
  - SUICIDAL IDEATION [None]
  - IRRITABILITY [None]
  - INSOMNIA [None]
  - CHEST PAIN [None]
  - CHILLS [None]
  - TREMOR [None]
  - NERVOUSNESS [None]
  - DIZZINESS [None]
